FAERS Safety Report 10827409 (Version 1)
Quarter: 2015Q1

REPORT INFORMATION
  Report Type: Spontaneous
  Country: GB (occurrence: GB)
  Receive Date: 20150219
  Receipt Date: 20150219
  Transmission Date: 20150721
  Serious: Yes (Hospitalization)
  Sender: FDA-Public Use
  Company Number: GB-AUROBINDO-AUR-APL-2015-01322

PATIENT
  Age: 47 Year
  Sex: Male
  Weight: 75 kg

DRUGS (1)
  1. FLUOXETINE [Suspect]
     Active Substance: FLUOXETINE\FLUOXETINE HYDROCHLORIDE
     Indication: DEPRESSION
     Dosage: 50 MG, UNK
     Route: 048

REACTIONS (7)
  - Anxiety [Recovering/Resolving]
  - Tremor [Recovering/Resolving]
  - Depression [Recovering/Resolving]
  - Hyperhidrosis [Recovering/Resolving]
  - Serotonin syndrome [Recovering/Resolving]
  - Heart rate increased [Recovering/Resolving]
  - Seizure [Unknown]
